FAERS Safety Report 7620170-1 (Version None)
Quarter: 2011Q3

REPORT INFORMATION
  Report Type: 
  Country: None (occurrence: None)
  Receive Date: 20110719
  Receipt Date: 20110707
  Transmission Date: 20111222
  Serious: Yes (Other)
  Sender: FDA-Public Use
  Company Number: US-JNJFOC-20110703889

PATIENT
  Age: 58 Year
  Sex: Male

DRUGS (2)
  1. NICOTINE [Suspect]
     Route: 048
     Dates: start: 20110706
  2. NICOTINE [Suspect]
     Indication: NICOTINE DEPENDENCE
     Route: 048
     Dates: start: 20080101, end: 20110630

REACTIONS (9)
  - PAIN [None]
  - DRUG ADMINISTRATION ERROR [None]
  - PAIN IN EXTREMITY [None]
  - PERFORMANCE STATUS DECREASED [None]
  - NICOTINE DEPENDENCE [None]
  - INTENTIONAL DRUG MISUSE [None]
  - POOR QUALITY SLEEP [None]
  - PANIC REACTION [None]
  - INSOMNIA [None]
